FAERS Safety Report 20135019 (Version 2)
Quarter: 2021Q4

REPORT INFORMATION
  Report Type: Spontaneous
  Country: CN (occurrence: CN)
  Receive Date: 20211201
  Receipt Date: 20211217
  Transmission Date: 20220303
  Serious: Yes (Death, Hospitalization, Other)
  Sender: FDA-Public Use
  Company Number: CN-SA-SAC20211130001178

PATIENT
  Age: 1 Month
  Sex: Female

DRUGS (5)
  1. RIFAMPIN [Suspect]
     Active Substance: RIFAMPIN
     Indication: Pulmonary tuberculosis
     Dosage: UNK
     Dates: start: 201712
  2. RIFAMPIN [Suspect]
     Active Substance: RIFAMPIN
     Dosage: UNK
  3. ISONIAZID [Suspect]
     Active Substance: ISONIAZID
     Indication: Pulmonary tuberculosis
     Dosage: UNK
     Dates: start: 201712
  4. PYRAZINAMIDE [Suspect]
     Active Substance: PYRAZINAMIDE
     Indication: Pulmonary tuberculosis
     Dosage: UNK
     Dates: start: 201712
  5. BCG VACCINE [Suspect]
     Active Substance: BCG VACCINE
     Indication: Immunisation
     Dosage: UNK
     Dates: start: 20171019

REACTIONS (2)
  - Tuberculosis [Fatal]
  - Immunodeficiency [Fatal]

NARRATIVE: CASE EVENT DATE: 20180408
